APPROVED DRUG PRODUCT: CLORAZEPATE DIPOTASSIUM
Active Ingredient: CLORAZEPATE DIPOTASSIUM
Strength: 15MG
Dosage Form/Route: CAPSULE;ORAL
Application: A071860 | Product #001
Applicant: WATSON LABORATORIES INC
Approved: Mar 15, 1988 | RLD: No | RS: No | Type: DISCN